FAERS Safety Report 9118777 (Version 3)
Quarter: 2013Q3

REPORT INFORMATION
  Report Type: Spontaneous
  Country: US (occurrence: US)
  Receive Date: 20130226
  Receipt Date: 20130723
  Transmission Date: 20140515
  Serious: No
  Sender: FDA-Public Use
  Company Number: US-009507513-1302USA011245

PATIENT
  Age: 37 Year
  Sex: Female
  Weight: 95.24 kg

DRUGS (4)
  1. PEGINTRON [Suspect]
     Dosage: 120 MICROGRAM/0.5ML , QW, REDIPEN
     Route: 058
     Dates: start: 20130201
  2. RIBATAB [Suspect]
     Dosage: UNK
     Route: 048
  3. VITAMINS (UNSPECIFIED) [Concomitant]
  4. PROBIOTICS (UNSPECIFIED) [Concomitant]

REACTIONS (9)
  - Crying [Unknown]
  - Pain [Not Recovered/Not Resolved]
  - Pain [Not Recovered/Not Resolved]
  - Irritability [Unknown]
  - Affect lability [Unknown]
  - Pyrexia [Unknown]
  - Influenza like illness [Unknown]
  - Fatigue [Unknown]
  - Anaemia [Unknown]
